FAERS Safety Report 6958426-8 (Version None)
Quarter: 2010Q3

REPORT INFORMATION
  Report Type: 
  Country: None (occurrence: None)
  Receive Date: 20100817
  Receipt Date: 20090714
  Transmission Date: 20110219
  Serious: Yes (Hospitalization)
  Sender: FDA-Public Use
  Company Number: 20097145

PATIENT
  Sex: Female

DRUGS (2)
  1. LIORESAL [Suspect]
     Indication: MUSCLE SPASTICITY
     Dosage: UNK MCG; DAILY, INTRATHECAL
     Route: 037
  2. DILAUDID [Concomitant]

REACTIONS (6)
  - NAUSEA [None]
  - OEDEMA PERIPHERAL [None]
  - PAIN [None]
  - PAIN IN EXTREMITY [None]
  - THERAPY CESSATION [None]
  - VOMITING [None]
